FAERS Safety Report 6288272-2 (Version None)
Quarter: 2009Q3

REPORT INFORMATION
  Report Type: 
  Country: None (occurrence: None)
  Receive Date: 20090723
  Receipt Date: 20090618
  Transmission Date: 20100115
  Serious: No
  Sender: FDA-Public Use
  Company Number: PYLE-2009-012

PATIENT
  Age: 67 Year
  Sex: Female

DRUGS (3)
  1. PYLERA [Suspect]
     Dosage: 3 CAPS, QID, PO
     Route: 048
     Dates: start: 20090612, end: 20090601
  2. PYLERA [Suspect]
     Dosage: 3 CAPS, TID, PO
     Route: 048
     Dates: start: 20090601
  3. NEXIUM [Concomitant]

REACTIONS (3)
  - ABDOMINAL PAIN UPPER [None]
  - FAECES DISCOLOURED [None]
  - FREQUENT BOWEL MOVEMENTS [None]
